FAERS Safety Report 21311280 (Version 1)
Quarter: 2022Q3

REPORT INFORMATION
  Report Type: Spontaneous
  Country: US (occurrence: None)
  Receive Date: 20220908
  Receipt Date: 20220908
  Transmission Date: 20221027
  Serious: Yes (Death)
  Sender: FDA-Public Use
  Company Number: None

PATIENT
  Age: 82 Year
  Sex: Female
  Weight: 196.9 kg

DRUGS (37)
  1. IBRANCE [Suspect]
     Active Substance: PALBOCICLIB
     Indication: Breast cancer female
     Dosage: OTHER FREQUENCY : 21D ON 7D OFF;?
     Route: 048
  2. ALBUTEROL [Concomitant]
     Active Substance: ALBUTEROL
  3. BISACODYL [Concomitant]
     Active Substance: BISACODYL
  4. BUSPIRONE [Concomitant]
     Active Substance: BUSPIRONE HYDROCHLORIDE
  5. CARVEDILOL [Concomitant]
     Active Substance: CARVEDILOL
  6. CETIRIZINE HYDROCHLORIDE [Concomitant]
     Active Substance: CETIRIZINE HYDROCHLORIDE
  7. COLACE [Concomitant]
     Active Substance: DOCUSATE SODIUM
  8. ELIQUIS [Concomitant]
     Active Substance: APIXABAN
  9. EUCERIN [Concomitant]
     Active Substance: ENSULIZOLE\EUCERIN\OCTINOXATE\OCTISALATE\TITANIUM DIOXIDE\ZINC OXIDE
  10. FIBER [Concomitant]
     Active Substance: PSYLLIUM HUSK
  11. FLONASE [Concomitant]
     Active Substance: FLUTICASONE PROPIONATE
  12. GABAPENTIN [Concomitant]
     Active Substance: GABAPENTIN
  13. GAVISCON [Concomitant]
     Active Substance: ALUMINUM HYDROXIDE\MAGNESIUM CARBONATE
  14. GERI-TUSSIN EXPECTORANT [Concomitant]
     Active Substance: GUAIFENESIN
  15. GLYCOLAX [Concomitant]
     Active Substance: POLYETHYLENE GLYCOL 3350
  16. HYDROCORTISONE [Concomitant]
     Active Substance: HYDROCORTISONE
  17. ISOSORBIDE [Concomitant]
     Active Substance: ISOSORBIDE
  18. KEPPRA [Concomitant]
     Active Substance: LEVETIRACETAM
  19. LASIX [Concomitant]
     Active Substance: FUROSEMIDE
  20. LEVOTHYROXINE [Concomitant]
     Active Substance: LEVOTHYROXINE
  21. LIPITOR [Concomitant]
     Active Substance: ATORVASTATIN CALCIUM
  22. LISINOPRIL [Concomitant]
     Active Substance: LISINOPRIL
  23. LORAZEPAM [Concomitant]
     Active Substance: LORAZEPAM
  24. MAALOX ANTACID [Concomitant]
     Active Substance: ALUMINUM HYDROXIDE\DIMETHICONE\MAGNESIUM HYDROXIDE
  25. MILK OF MAGNESIA [Concomitant]
     Active Substance: MAGNESIUM HYDROXIDE
  26. MUCINEX [Concomitant]
     Active Substance: GUAIFENESIN
  27. NEXIUM [Concomitant]
     Active Substance: ESOMEPRAZOLE MAGNESIUM
  28. OXYCODONE [Concomitant]
     Active Substance: OXYCODONE
  29. POTASSIUM CHLORIDE [Concomitant]
     Active Substance: POTASSIUM CHLORIDE
  30. SILVER SULFADIAZINE [Concomitant]
     Active Substance: SILVER SULFADIAZINE
  31. SORBITOL [Concomitant]
     Active Substance: SORBITOL
  32. TRELEGY ELLIPTA [Concomitant]
     Active Substance: FLUTICASONE FUROATE\UMECLIDINIUM BROMIDE\VILANTEROL TRIFENATATE
  33. TRIAMCINOLONE [Concomitant]
     Active Substance: TRIAMCINOLONE
  34. TYLENOL [Concomitant]
     Active Substance: ACETAMINOPHEN
  35. VIMPAT [Concomitant]
     Active Substance: LACOSAMIDE
  36. VOLTAREN [Concomitant]
     Active Substance: DICLOFENAC SODIUM
  37. ZOLOFT [Concomitant]
     Active Substance: SERTRALINE HYDROCHLORIDE

REACTIONS (1)
  - Death [None]
